FAERS Safety Report 5010276-8 (Version None)
Quarter: 2006Q2

REPORT INFORMATION
  Report Type: 
  Country: None (occurrence: None)
  Receive Date: 20060404
  Receipt Date: 20051202
  Transmission Date: 20061013
  Serious: No
  Sender: FDA-Public Use
  Company Number: US200512000577

PATIENT
  Age: 56 Year
  Sex: Female

DRUGS (9)
  1. CYMBALTA [Suspect]
     Indication: DEPRESSION
     Dosage: 30 MG, DAILY (1/D)
     Dates: start: 20051108
  2. PROZAC [Suspect]
     Indication: DEPRESSION
     Dosage: 60 MG
     Dates: start: 19870101
  3. ATIVAN [Concomitant]
  4. CRESTOR [Concomitant]
  5. PROMETRIUM [Concomitant]
  6. HYDROCHLOROTHIAZIDE [Concomitant]
  7. LOTREL [Concomitant]
  8. ESTRADIOL [Concomitant]
  9. ATENOLOL [Concomitant]

REACTIONS (3)
  - DRUG INEFFECTIVE [None]
  - TREMOR [None]
  - VISION BLURRED [None]
